FAERS Safety Report 5094510-4 (Version None)
Quarter: 2006Q3

REPORT INFORMATION
  Report Type: 
  Country: None (occurrence: None)
  Receive Date: 20060830
  Receipt Date: 20060822
  Transmission Date: 20061208
  Serious: Yes (Hospitalization)
  Sender: FDA-Public Use
  Company Number: 226583

PATIENT
  Age: 57 Year
  Sex: Male
  Weight: 93.4 kg

DRUGS (12)
  1. AVASTIN [Suspect]
     Indication: RECTAL CANCER
     Dosage: 5 MG/KG, INTRAVENOUS
     Route: 042
     Dates: start: 20060522, end: 20060605
  2. ERLOTINIB (ERLOTINIB) TABLET, 25MG [Suspect]
     Indication: RECTAL CANCER
     Dosage: 50 MG, QD, ORAL
     Route: 048
     Dates: start: 20060522
  3. FLUOROURACIL [Suspect]
     Indication: RECTAL CANCER
     Dosage: 168.75 MG/ML, QD, INTRAVENOUS
     Route: 042
     Dates: start: 20060522, end: 20060619
  4. RADIATION THERAPY (RADIATION THERAPY) [Concomitant]
  5. ATIVAN [Concomitant]
  6. COMPAZINE [Concomitant]
  7. FOLIC ACID [Concomitant]
  8. HYDROCHLOROTHIAZIDE [Concomitant]
  9. POTASSIUM CHLORIDE [Concomitant]
  10. MIRACLE MOUTHWASH (MOUTHWASH NOS) [Concomitant]
  11. TOPROL-XL [Concomitant]
  12. ZOFRAN [Concomitant]

REACTIONS (9)
  - ALANINE AMINOTRANSFERASE INCREASED [None]
  - ASPARTATE AMINOTRANSFERASE INCREASED [None]
  - CHILLS [None]
  - COLITIS [None]
  - DIARRHOEA [None]
  - LYMPHOPENIA [None]
  - PYREXIA [None]
  - RECTAL HAEMORRHAGE [None]
  - TREMOR [None]
